FAERS Safety Report 15527176 (Version 1)
Quarter: 2018Q4

REPORT INFORMATION
  Report Type: Report from Study
  Country: MX (occurrence: MX)
  Receive Date: 20181018
  Receipt Date: 20181018
  Transmission Date: 20190205
  Serious: Yes (Death)
  Sender: FDA-Public Use
  Company Number: PHHY2018MX130466

PATIENT
  Age: 17 Year
  Sex: Female

DRUGS (6)
  1. VITAMIN B COMP [Concomitant]
     Indication: PRODUCT USED FOR UNKNOWN INDICATION
     Dosage: 1 DF, QD
     Route: 065
     Dates: start: 20180619
  2. REVOLADE [Suspect]
     Active Substance: ELTROMBOPAG
     Indication: PLATELET DISORDER
     Dosage: 1 DF, QD
     Route: 048
     Dates: start: 20180701
  3. DINOGEST [Concomitant]
     Active Substance: DIENOGEST
     Indication: HORMONE LEVEL ABNORMAL
     Dosage: 1 OT, QD
     Dates: start: 20180601
  4. SANDIMMUN [Suspect]
     Active Substance: CYCLOSPORINE
     Indication: PLATELET DISORDER
     Dosage: 3 OT, QD
     Route: 048
     Dates: start: 20180601
  5. REVOLADE [Suspect]
     Active Substance: ELTROMBOPAG
     Indication: NEUTROPHIL COUNT ABNORMAL
  6. FOLIC ACID. [Concomitant]
     Active Substance: FOLIC ACID
     Indication: PRODUCT USED FOR UNKNOWN INDICATION
     Dosage: 1 DF, QD
     Route: 065
     Dates: start: 20180601

REACTIONS (2)
  - Product use in unapproved indication [Unknown]
  - Death [Fatal]

NARRATIVE: CASE EVENT DATE: 20180917
